FAERS Safety Report 7287615-0 (Version None)
Quarter: 2011Q1

REPORT INFORMATION
  Report Type: 
  Country: None (occurrence: None)
  Receive Date: 20110208
  Receipt Date: 20110208
  Transmission Date: 20110831
  Serious: No
  Sender: FDA-Public Use
  Company Number: None

PATIENT
  Age: 7 Year
  Sex: Female
  Weight: 22.2263 kg

DRUGS (2)
  1. SEROQUEL XR [Suspect]
     Indication: ANXIETY
     Dosage: 100 MG 2 TIMES A DAY PO
     Route: 048
     Dates: start: 20100818, end: 20110115
  2. SEROQUEL XR [Suspect]
     Indication: OBSESSIVE-COMPULSIVE DISORDER
     Dosage: 100 MG 2 TIMES A DAY PO
     Route: 048
     Dates: start: 20100818, end: 20110115

REACTIONS (5)
  - HEADACHE [None]
  - VOMITING [None]
  - MUSCLE TWITCHING [None]
  - CONFUSIONAL STATE [None]
  - TIC [None]
